FAERS Safety Report 14898680 (Version 2)
Quarter: 2018Q2

REPORT INFORMATION
  Report Type: Spontaneous
  Country: JP (occurrence: JP)
  Receive Date: 20180515
  Receipt Date: 20180515
  Transmission Date: 20180711
  Serious: Yes (Hospitalization, Other)
  Sender: FDA-Public Use
  Company Number: PHHY2018JP001986

PATIENT
  Age: 47 Year
  Sex: Female
  Weight: 39.5 kg

DRUGS (5)
  1. PREDNISOLONE. [Suspect]
     Active Substance: PREDNISOLONE
     Indication: THYMOMA MALIGNANT
     Dosage: 12.5 MG, QD
     Route: 065
  2. CYCLOPHOSPHAMIDE. [Suspect]
     Active Substance: CYCLOPHOSPHAMIDE
     Indication: THYMOMA MALIGNANT
     Dosage: 500 MG, UNK
     Route: 065
  3. CISPLATIN. [Suspect]
     Active Substance: CISPLATIN
     Indication: THYMOMA MALIGNANT
     Dosage: 50 MG, UNK
     Route: 065
  4. DOXORUBICIN [Suspect]
     Active Substance: DOXORUBICIN
     Indication: THYMOMA MALIGNANT
     Dosage: 50 MG, UNK
     Route: 065
  5. PREDNISOLONE. [Suspect]
     Active Substance: PREDNISOLONE
     Dosage: 10 MG, QD
     Route: 065

REACTIONS (6)
  - Good syndrome [Unknown]
  - Product use in unapproved indication [Unknown]
  - Aphasia [Unknown]
  - Secondary immunodeficiency [Unknown]
  - Progressive multifocal leukoencephalopathy [Unknown]
  - Gait disturbance [Unknown]
